FAERS Safety Report 8834540 (Version 1)
Quarter: 2012Q4

REPORT INFORMATION
  Report Type: Spontaneous
  Country: US (occurrence: None)
  Receive Date: 20120927
  Receipt Date: 20120927
  Transmission Date: 20130627
  Serious: Yes (Death, Other)
  Sender: FDA-Public Use
  Company Number: 2011PROUSA01807

PATIENT
  Age: 66 Year
  Sex: Male
  Weight: 107.9 kg

DRUGS (3)
  1. PROVENGE (SIPULEUCEL-T) SUSPENSION, 250ML [Suspect]
     Indication: PROSTATE CANCER METASTATIC
     Route: 042
     Dates: start: 20110822, end: 20110822
  2. KETOCONAZOLE [Concomitant]
  3. CORTEF (HYDROCORTISONE) [Concomitant]

REACTIONS (4)
  - Haemosiderosis [None]
  - Metastases to liver [None]
  - Malignant neoplasm progression [None]
  - Adverse event [None]
